FAERS Safety Report 20163518 (Version 2)
Quarter: 2022Q1

REPORT INFORMATION
  Report Type: Spontaneous
  Country: CZ (occurrence: CZ)
  Receive Date: 20211209
  Receipt Date: 20220124
  Transmission Date: 20220423
  Serious: Yes (Other)
  Sender: FDA-Public Use
  Company Number: CZ-HBP-2021CZ023530

PATIENT
  Sex: Female

DRUGS (17)
  1. SUMATRIPTAN [Suspect]
     Active Substance: SUMATRIPTAN
     Indication: Migraine
     Dosage: UNK, UNKNOWN
     Route: 065
     Dates: start: 201809
  2. SUMATRIPTAN [Suspect]
     Active Substance: SUMATRIPTAN
     Dosage: UNK
     Route: 065
  3. NIMESULIDE [Suspect]
     Active Substance: NIMESULIDE
     Indication: Migraine
     Dosage: UNK UNK, UNKNOWN
     Route: 065
  4. DEXAMETHASONE [Suspect]
     Active Substance: DEXAMETHASONE
     Indication: Migraine
     Dosage: UNK
     Route: 065
  5. DIAZEPAM [Suspect]
     Active Substance: DIAZEPAM
     Indication: Migraine
     Dosage: UNK
     Route: 065
  6. ERGOTAMINE [Suspect]
     Active Substance: CAFFEINE\ERGOTAMINE\ERGOTAMINE TARTRATE
     Indication: Migraine
     Dosage: UNK
     Route: 054
  7. DIAZEPAM [Concomitant]
     Active Substance: DIAZEPAM
     Indication: Migraine
     Dosage: UNK, UNKNOWN
     Route: 065
     Dates: start: 201809
  8. CITALOPRAM [Concomitant]
     Active Substance: CITALOPRAM HYDROBROMIDE
     Indication: Depression
     Dosage: 20 MILLIGRAM, ONCE A DAY
     Route: 065
     Dates: start: 201809
  9. INDOMETHACIN [Concomitant]
     Active Substance: INDOMETHACIN
     Indication: Product used for unknown indication
     Dosage: UNK, UNKNOWN
     Route: 065
     Dates: start: 201907
  10. VALPROATE SODIUM [Concomitant]
     Active Substance: VALPROATE SODIUM
     Indication: Product used for unknown indication
     Dosage: 450 MILLIGRAM, UNKNOWN
     Route: 065
     Dates: start: 201905
  11. VALPROATE SODIUM [Concomitant]
     Active Substance: VALPROATE SODIUM
     Indication: Migraine
     Dosage: 500 MILLIGRAM, ONCE A DAY
     Route: 065
     Dates: start: 201907
  12. VALPROATE SODIUM [Concomitant]
     Active Substance: VALPROATE SODIUM
     Dosage: 450 MILLIGRAM, ONCE A DAY
     Route: 065
  13. VALPROATE SODIUM [Concomitant]
     Active Substance: VALPROATE SODIUM
     Dosage: 500 MILLIGRAM, TWO TIMES A DAY
     Route: 065
  14. ERGOTAMINE [Concomitant]
     Active Substance: CAFFEINE\ERGOTAMINE\ERGOTAMINE TARTRATE
     Indication: Migraine
     Dosage: UNK, UNKNOWN
     Route: 065
     Dates: start: 201809
  15. DEXAMETHASONE [Concomitant]
     Active Substance: DEXAMETHASONE
     Indication: Migraine
     Dosage: UNK, UNKNOWN
     Route: 065
     Dates: start: 201809
  16. TOPIRAMATE [Concomitant]
     Active Substance: TOPIRAMATE
     Indication: Myotonic dystrophy
     Dosage: 50 MILLIGRAM, TITRATED TO THE DOSE OF 2X50MG
     Route: 065
     Dates: start: 2007, end: 201905
  17. TOPIRAMATE [Concomitant]
     Active Substance: TOPIRAMATE
     Indication: Migraine
     Dosage: 2 DOSAGE FORM
     Route: 065

REACTIONS (2)
  - Medication overuse headache [Recovering/Resolving]
  - Drug abuse [Not Recovered/Not Resolved]
